FAERS Safety Report 7210606-2 (Version None)
Quarter: 2010Q4

REPORT INFORMATION
  Report Type: 
  Country: None (occurrence: None)
  Receive Date: 20101223
  Receipt Date: 20101217
  Transmission Date: 20110411
  Serious: Yes (Death)
  Sender: FDA-Public Use
  Company Number: 2010S1000293

PATIENT
  Sex: Male

DRUGS (1)
  1. INOMAX [Suspect]
     Indication: PULMONARY HYPERTENSION
     Dosage: CONT;INH
     Route: 055
     Dates: start: 20101216, end: 20101216

REACTIONS (1)
  - DEATH [None]
